FAERS Safety Report 5078560-X (Version None)
Quarter: 2006Q3

REPORT INFORMATION
  Report Type: 
  Country: None (occurrence: None)
  Receive Date: 20060811
  Receipt Date: 20060616
  Transmission Date: 20061208
  Serious: Yes (Other)
  Sender: FDA-Public Use
  Company Number: DE-MERCK-0606DEU00083

PATIENT
  Age: 66 Year
  Sex: Male
  Weight: 65 kg

DRUGS (10)
  1. EMEND [Suspect]
     Indication: PROPHYLAXIS OF NAUSEA AND VOMITING
     Route: 048
     Dates: start: 20060607, end: 20060607
  2. EMEND [Suspect]
     Route: 048
     Dates: start: 20060608, end: 20060609
  3. EMEND [Suspect]
     Route: 048
     Dates: start: 20060101
  4. DEXAMETHASONE SODIUM PHOSPHATE [Concomitant]
     Indication: METASTATIC NEOPLASM
     Route: 041
     Dates: start: 20060607, end: 20060607
  5. DEXAMETHASONE SODIUM PHOSPHATE [Concomitant]
     Route: 041
     Dates: start: 20060101
  6. TROPISETRON HYDROCHLORIDE [Concomitant]
     Indication: METASTATIC NEOPLASM
     Route: 041
     Dates: start: 20060607, end: 20060607
  7. GEMCITABINE [Concomitant]
     Indication: METASTATIC NEOPLASM
     Route: 041
     Dates: start: 20060607, end: 20060607
  8. CISPLATIN [Suspect]
     Indication: METASTATIC NEOPLASM
     Route: 041
     Dates: start: 20060607, end: 20060607
  9. CISPLATIN [Suspect]
     Route: 041
     Dates: start: 20060101
  10. SODIUM CHLORIDE [Concomitant]
     Indication: METASTATIC NEOPLASM
     Route: 041
     Dates: start: 20060607, end: 20060607

REACTIONS (6)
  - ANOREXIA [None]
  - APATHY [None]
  - ASTHENIA [None]
  - DIZZINESS [None]
  - FATIGUE [None]
  - WEIGHT DECREASED [None]
